FAERS Safety Report 25985958 (Version 3)
Quarter: 2025Q4

REPORT INFORMATION
  Report Type: Spontaneous
  Country: JP (occurrence: JP)
  Receive Date: 20251031
  Receipt Date: 20251214
  Transmission Date: 20260118
  Serious: Yes (Hospitalization, Disabling)
  Sender: MERCK SHARP & DOHME LLC
  Company Number: JP-009507513-2342481

PATIENT
  Age: 59 Year
  Sex: Female
  Weight: 45.6 kg

DRUGS (3)
  1. WELIREG [Suspect]
     Active Substance: BELZUTIFAN
     Indication: Renal cell carcinoma
     Dosage: 3 TABLETS ONCE DAILY
     Route: 048
     Dates: start: 20251007, end: 20251017
  2. WELIREG [Suspect]
     Active Substance: BELZUTIFAN
     Indication: Renal cell carcinoma
     Route: 048
     Dates: start: 20251113, end: 20251201
  3. WELIREG [Suspect]
     Active Substance: BELZUTIFAN
     Indication: Renal cell carcinoma
     Route: 048
     Dates: start: 20251203

REACTIONS (1)
  - Deafness neurosensory [Not Recovered/Not Resolved]

NARRATIVE: CASE EVENT DATE: 20251015
